FAERS Safety Report 15365356 (Version 2)
Quarter: 2018Q3

REPORT INFORMATION
  Report Type: Spontaneous
  Country: US (occurrence: US)
  Receive Date: 20180910
  Receipt Date: 20180913
  Transmission Date: 20181010
  Serious: Yes (Disabling, Other)
  Sender: FDA-Public Use
  Company Number: US-PFIZER INC-2018357878

PATIENT
  Age: 57 Year
  Sex: Male
  Weight: 84.35 kg

DRUGS (2)
  1. LYRICA [Suspect]
     Active Substance: PREGABALIN
     Indication: NEURALGIA
  2. LYRICA [Suspect]
     Active Substance: PREGABALIN
     Indication: NEUROPATHY PERIPHERAL
     Dosage: 75 MG, DAILY ( (25 MG 2 IN MORNING ONE IN EVENING)
     Route: 048
     Dates: start: 201803, end: 201804

REACTIONS (2)
  - Seizure like phenomena [Recovering/Resolving]
  - Myoclonic epilepsy [Unknown]

NARRATIVE: CASE EVENT DATE: 201803
